FAERS Safety Report 8022065-0 (Version None)
Quarter: 2012Q1

REPORT INFORMATION
  Report Type: 
  Country: None (occurrence: None)
  Receive Date: 20120104
  Receipt Date: 20111221
  Transmission Date: 20120608
  Serious: Yes (Hospitalization, Other)
  Sender: FDA-Public Use
  Company Number: PHHY2011FR111592

PATIENT
  Sex: Female
  Weight: 45 kg

DRUGS (17)
  1. PROGRAF [Concomitant]
     Indication: LIVER TRANSPLANT
     Dosage: UNK UKN, UNK
  2. RANITIDINE HCL [Concomitant]
     Indication: LIVER TRANSPLANT
     Dosage: UNK UKN, UNK
  3. BISOPROLOL FUMARATE [Concomitant]
     Dosage: UNK UKN, UNK
  4. VITAMIN B1 TAB [Concomitant]
     Dosage: UNK UKN, UNK
  5. NEORAL [Suspect]
     Indication: PROPHYLAXIS AGAINST TRANSPLANT REJECTION
     Dosage: 125 MG, BID
     Dates: start: 20060101
  6. MYCOPHENOLATE MOFETIL (CELLCEPT) [Suspect]
     Dosage: 500 MG, BID
     Route: 048
  7. ZOVIRAX [Concomitant]
     Indication: LIVER TRANSPLANT
     Dosage: UNK UKN, UNK
  8. ZOLPIDEM [Concomitant]
     Dosage: UNK UKN, UNK
  9. NEORAL [Suspect]
     Dosage: 50 MG, BID
     Dates: start: 20081201
  10. CANDESARTAN CILEXETIL [Concomitant]
     Dosage: UNK UKN, UNK
  11. MYCOPHENOLATE MOFETIL (CELLCEPT) [Suspect]
     Dosage: 50 MG, BID
  12. NICARDIPINE HCL [Concomitant]
     Dosage: UNK UKN, UNK
  13. SOLU-MEDROL [Concomitant]
     Indication: LIVER TRANSPLANT
     Dosage: UNK UKN, UNK
  14. FENTANYL [Concomitant]
     Indication: LIVER TRANSPLANT
     Dosage: UNK UKN, UNK
  15. OMEPRAZOLE [Concomitant]
     Dosage: UNK UKN, UNK
  16. LASIX [Concomitant]
     Dosage: UNK UKN, UNK
  17. VITAMIN B6 [Concomitant]
     Dosage: UNK UKN, UNK

REACTIONS (11)
  - NEPHROANGIOSCLEROSIS [None]
  - GLOMERULAR FILTRATION RATE DECREASED [None]
  - BLOOD CREATININE INCREASED [None]
  - RENAL FAILURE CHRONIC [None]
  - BLOOD UREA INCREASED [None]
  - GLOMERULOSCLEROSIS [None]
  - RENAL IMPAIRMENT [None]
  - KIDNEY FIBROSIS [None]
  - NEPHROPATHY TOXIC [None]
  - TOXICITY TO VARIOUS AGENTS [None]
  - METABOLIC ACIDOSIS [None]
